FAERS Safety Report 12266679 (Version 4)
Quarter: 2016Q2

REPORT INFORMATION
  Report Type: Spontaneous
  Country: CA (occurrence: CA)
  Receive Date: 20160414
  Receipt Date: 20160620
  Transmission Date: 20160815
  Serious: Yes (Hospitalization, Other)
  Sender: FDA-Public Use
  Company Number: CA-009507513-1604CAN007381

PATIENT
  Age: 54 Year
  Sex: Male
  Weight: 66 kg

DRUGS (3)
  1. KEYTRUDA [Suspect]
     Active Substance: PEMBROLIZUMAB
     Dosage: 2 MG/KG (120 MG) Q3W
     Route: 042
     Dates: start: 2016, end: 20160614
  2. KEYTRUDA [Suspect]
     Active Substance: PEMBROLIZUMAB
     Indication: METASTATIC MALIGNANT MELANOMA
     Dosage: 2 MG/KG (132 MG), Q3W
     Route: 042
     Dates: start: 20160323, end: 2016
  3. PREDNISONE. [Concomitant]
     Active Substance: PREDNISONE
     Dosage: 5 MG, QD
     Route: 048

REACTIONS (14)
  - Memory impairment [Unknown]
  - Dysphagia [Unknown]
  - Neck mass [Unknown]
  - Decreased appetite [Unknown]
  - Vomiting [Unknown]
  - Nodule [Unknown]
  - Weight decreased [Unknown]
  - Nausea [Unknown]
  - Fatigue [Unknown]
  - Malignant neoplasm progression [Unknown]
  - Speech disorder [Unknown]
  - Asthenia [Unknown]
  - Dyspnoea [Unknown]
  - Cerebral disorder [Unknown]

NARRATIVE: CASE EVENT DATE: 2016
